FAERS Safety Report 4487246-1 (Version None)
Quarter: 2004Q4

REPORT INFORMATION
  Report Type: 
  Country: None (occurrence: None)
  Receive Date: 20041022
  Receipt Date: 20041007
  Transmission Date: 20050328
  Serious: Yes (Life-Threatening, Hospitalization)
  Sender: FDA-Public Use
  Company Number: 234162

PATIENT
  Age: 55 Year
  Sex: Female

DRUGS (9)
  1. INNOLET R CHU           (INSULIN HUMAN) [Suspect]
     Indication: INSULIN-REQUIRING TYPE II DIABETES MELLITUS
     Dosage: 20 IU, QD, SUBCUTANEOUS
     Route: 058
     Dates: start: 20011101, end: 20031005
  2. URSO   (URSODEOXYCHOLIC ACID) [Concomitant]
  3. PERSANTIN [Concomitant]
  4. KINEDAK (EPALRESTAT) [Concomitant]
  5. EPADEL (ETHYL ICOSAPENTATE) [Concomitant]
  6. ALLOPURINOL [Concomitant]
  7. LASIX [Concomitant]
  8. HUMALIN [Concomitant]
  9. MONOTARD CHU            (INSULIN HUMAN) [Concomitant]

REACTIONS (4)
  - BLOOD PRESSURE DECREASED [None]
  - BODY TEMPERATURE INCREASED [None]
  - DRUG ERUPTION [None]
  - SWELLING [None]
